FAERS Safety Report 5963398-9 (Version None)
Quarter: 2008Q4

REPORT INFORMATION
  Report Type: 
  Country: None (occurrence: None)
  Receive Date: 20081124
  Receipt Date: 20081121
  Transmission Date: 20090506
  Serious: Yes (Other)
  Sender: FDA-Public Use
  Company Number: D0058956A

PATIENT
  Age: 63 Year
  Sex: Male
  Weight: 87 kg

DRUGS (3)
  1. MALARONE [Suspect]
     Route: 048
  2. NEBIVOLOL [Concomitant]
     Indication: ARRHYTHMIA
     Dosage: 2.5MG PER DAY
     Route: 048
     Dates: start: 20080901
  3. FLECAINIDE ACETATE [Concomitant]
     Indication: ARRHYTHMIA
     Dosage: 50MG PER DAY
     Route: 048
     Dates: start: 20080901

REACTIONS (5)
  - OROPHARYNGEAL BLISTERING [None]
  - PAIN [None]
  - PRODUCT QUALITY ISSUE [None]
  - PRURITUS [None]
  - RASH [None]
